FAERS Safety Report 16470750 (Version 1)
Quarter: 2019Q2

REPORT INFORMATION
  Report Type: Report from Study
  Country: FR (occurrence: FR)
  Receive Date: 20190624
  Receipt Date: 20190624
  Transmission Date: 20190711
  Serious: Yes (Hospitalization, Other)
  Sender: FDA-Public Use
  Company Number: FR-BAYER-2019-118428

PATIENT
  Age: 55 Year
  Sex: Male

DRUGS (6)
  1. MOXIFLOXACIN. [Suspect]
     Active Substance: MOXIFLOXACIN
     Indication: LYMPH NODE TUBERCULOSIS
     Dosage: UNK
  2. ETHAMBUTOL [Concomitant]
     Active Substance: ETHAMBUTOL HYDROCHLORIDE
  3. PROTHIONAMIDE [Concomitant]
     Active Substance: PROTIONAMIDE
  4. CLOFAZIMINE [Concomitant]
     Active Substance: CLOFAZIMINE
  5. CYCLOSERINE. [Concomitant]
     Active Substance: CYCLOSERINE
  6. BEDAQUILINE [Concomitant]
     Active Substance: BEDAQUILINE

REACTIONS (4)
  - Atrioventricular block first degree [None]
  - Product use in unapproved indication [None]
  - Off label use [None]
  - Electrocardiogram QT prolonged [None]
